FAERS Safety Report 8336441-X (Version None)
Quarter: 2012Q2

REPORT INFORMATION
  Report Type: 
  Country: None (occurrence: None)
  Receive Date: 20120504
  Receipt Date: 20120430
  Transmission Date: 20120825
  Serious: Yes (Disabling, Other)
  Sender: FDA-Public Use
  Company Number: GB-PFIZER INC-2012105630

PATIENT
  Age: 37 Year
  Sex: Female
  Weight: 88 kg

DRUGS (2)
  1. PREGABALIN [Suspect]
     Indication: FIBROMYALGIA
     Dosage: 75 MG
     Route: 048
     Dates: start: 20120323, end: 20120414
  2. VITAMIN D [Concomitant]
     Indication: ARTHRALGIA
     Dosage: 1000 IU
     Route: 048
     Dates: start: 20111218

REACTIONS (1)
  - RASH MACULO-PAPULAR [None]
